FAERS Safety Report 19299187 (Version 1)
Quarter: 2021Q2

REPORT INFORMATION
  Report Type: Spontaneous
  Country: US (occurrence: US)
  Receive Date: 20210524
  Receipt Date: 20210524
  Transmission Date: 20210717
  Serious: Yes (Hospitalization)
  Sender: FDA-Public Use
  Company Number: None

PATIENT
  Age: 82 Year
  Sex: Male

DRUGS (1)
  1. CAPECITABINE 500 MG [Suspect]
     Active Substance: CAPECITABINE
     Route: 048
     Dates: start: 202102, end: 202104

REACTIONS (3)
  - Nausea [None]
  - Drug ineffective [None]
  - Platelet count decreased [None]

NARRATIVE: CASE EVENT DATE: 20210401
